FAERS Safety Report 10090589 (Version 1)
Quarter: 2014Q2

REPORT INFORMATION
  Report Type: Spontaneous
  Country: US (occurrence: None)
  Receive Date: 20140417
  Receipt Date: 20140417
  Transmission Date: 20141212
  Serious: Yes (Hospitalization)
  Sender: FDA-Public Use
  Company Number: UTC-047151

PATIENT
  Age: 75 Year
  Sex: Female
  Weight: 101.1 kg

DRUGS (2)
  1. TYVASO [Suspect]
     Indication: PULMONARY ARTERIAL HYPERTENSION
     Route: 055
     Dates: start: 20140218
  2. SILDENAFIL [Concomitant]

REACTIONS (3)
  - Lung disorder [None]
  - Renal disorder [None]
  - Cardiac disorder [None]
